FAERS Safety Report 7108766-7 (Version None)
Quarter: 2010Q4

REPORT INFORMATION
  Report Type: 
  Country: None (occurrence: None)
  Receive Date: 20101115
  Receipt Date: 20101115
  Transmission Date: 20110411
  Serious: Yes (Other)
  Sender: FDA-Public Use
  Company Number: None

PATIENT
  Age: 75 Year
  Sex: Female
  Weight: 83.4619 kg

DRUGS (1)
  1. EQUATE STOOL SOFTENER 100MG [Suspect]
     Indication: CONSTIPATION

REACTIONS (7)
  - ASTHENIA [None]
  - LETHARGY [None]
  - MELAENA [None]
  - NAUSEA [None]
  - SYNCOPE [None]
  - VOMITING [None]
  - WEIGHT DECREASED [None]
